FAERS Safety Report 19257341 (Version 1)
Quarter: 2021Q2

REPORT INFORMATION
  Report Type: Spontaneous
  Country: CN (occurrence: CN)
  Receive Date: 20210514
  Receipt Date: 20210514
  Transmission Date: 20210717
  Serious: Yes (Other)
  Sender: FDA-Public Use
  Company Number: CN-ROCHE-2828569

PATIENT
  Age: 45 Year
  Sex: Female

DRUGS (8)
  1. XELODA [Suspect]
     Active Substance: CAPECITABINE
     Indication: BREAST CANCER
     Dosage: DAY1 TO DAY14,ONCE PER 3WEEKS
     Route: 048
     Dates: start: 201908
  2. LAPATINIB [Concomitant]
     Active Substance: LAPATINIB
     Indication: BREAST CANCER
     Dosage: DAY1 TO DAY21
     Dates: start: 201908
  3. XELODA [Suspect]
     Active Substance: CAPECITABINE
     Dosage: DAY1 TO DAY14,ONCE PER 3WEEKS,6 CYCLES
     Route: 048
     Dates: start: 20201008
  4. CYCLOPHOSPHAMIDE. [Concomitant]
     Active Substance: CYCLOPHOSPHAMIDE
     Indication: BREAST CANCER
  5. PIRARUBICIN [Concomitant]
     Active Substance: PIRARUBICIN
     Indication: BREAST CANCER
  6. PYROTINIB [Concomitant]
     Active Substance: PYROTINIB
     Indication: BREAST CANCER
     Dosage: DAY1 TO DAY21,6 CYCLES
     Dates: start: 20201008
  7. HERCEPTIN [Suspect]
     Active Substance: TRASTUZUMAB
     Indication: BREAST CANCER
     Dosage: TARGETED THERAPY TWICE
     Route: 065
  8. PACLITAXEL LIPOSOME [Concomitant]
     Active Substance: PACLITAXEL
     Indication: BREAST CANCER

REACTIONS (1)
  - Tumour inflammation [Unknown]
